FAERS Safety Report 10975757 (Version 1)
Quarter: 2015Q2

REPORT INFORMATION
  Report Type: Spontaneous
  Country: US (occurrence: US)
  Receive Date: 20150401
  Receipt Date: 20150401
  Transmission Date: 20150821
  Serious: No
  Sender: FDA-Public Use
  Company Number: US-PFIZER INC-2015108864

PATIENT
  Age: 72 Year
  Sex: Female
  Weight: 95 kg

DRUGS (2)
  1. IBUPROFEN. [Suspect]
     Active Substance: IBUPROFEN
     Indication: PAIN
     Dosage: 600 MG, 4X/DAY (AS NEEDED)
     Route: 048
     Dates: start: 20150306, end: 201503
  2. CYCLOBENZAPRINE [Suspect]
     Active Substance: CYCLOBENZAPRINE
     Indication: MUSCLE SPASMS
     Dosage: 5 MG, 3X/DAY
     Route: 048
     Dates: start: 20150306

REACTIONS (2)
  - Somnolence [Unknown]
  - Weight decreased [Unknown]

NARRATIVE: CASE EVENT DATE: 201503
